FAERS Safety Report 6679480-7 (Version None)
Quarter: 2010Q2

REPORT INFORMATION
  Report Type: 
  Country: None (occurrence: None)
  Receive Date: 20100408
  Receipt Date: 20090804
  Transmission Date: 20101027
  Serious: No
  Sender: FDA-Public Use
  Company Number: 2009-00511

PATIENT
  Age: 73 Year
  Sex: Female
  Weight: 65.7716 kg

DRUGS (1)
  1. ZICAM ALLERGY RELIEF NASAL GEL [Suspect]
     Dates: start: 20070101, end: 20070101

REACTIONS (1)
  - ANOSMIA [None]
